FAERS Safety Report 8091341-8 (Version None)
Quarter: 2012Q1

REPORT INFORMATION
  Report Type: 
  Country: None (occurrence: None)
  Receive Date: 20120131
  Receipt Date: 20120119
  Transmission Date: 20120608
  Serious: Yes (Hospitalization, Other)
  Sender: FDA-Public Use
  Company Number: US-ELI_LILLY_AND_COMPANY-US201201006282

PATIENT
  Sex: Male

DRUGS (14)
  1. CYMBALTA [Suspect]
     Dosage: 90 MG, QD
  2. CALCITRIOL [Concomitant]
  3. ATIVAN [Concomitant]
  4. LOPRESSOR [Concomitant]
  5. BUMEX [Concomitant]
  6. EPOGEN [Concomitant]
  7. AMBIEN [Concomitant]
  8. LYRICA [Concomitant]
  9. INSULIN [Concomitant]
  10. ISORDIL [Concomitant]
  11. THEOPHYLLINE [Concomitant]
  12. CRESTOR [Concomitant]
  13. LEVOTHYROXINE SODIUM [Concomitant]
  14. FERROUS SULFATE TAB [Concomitant]

REACTIONS (3)
  - CHRONIC RESPIRATORY FAILURE [None]
  - OFF LABEL USE [None]
  - RENAL FAILURE CHRONIC [None]
